FAERS Safety Report 6590740-0 (Version None)
Quarter: 2010Q1

REPORT INFORMATION
  Report Type: 
  Country: None (occurrence: None)
  Receive Date: 20100219
  Receipt Date: 20100209
  Transmission Date: 20100710
  Serious: Yes (Other)
  Sender: FDA-Public Use
  Company Number: CA-JNJFOC-20090807304

PATIENT
  Sex: Male
  Weight: 86.18 kg

DRUGS (5)
  1. INVEGA [Suspect]
     Indication: SCHIZOPHRENIA
     Route: 048
  2. SEROQUEL XR [Concomitant]
     Indication: SCHIZOPHRENIA
  3. ATIVAN [Concomitant]
     Indication: ANXIETY
  4. DALMANE [Concomitant]
     Indication: INSOMNIA
  5. EFFEXOR XR [Concomitant]
     Indication: ANXIETY

REACTIONS (1)
  - PANCREATITIS [None]
